FAERS Safety Report 17389814 (Version 1)
Quarter: 2020Q1

REPORT INFORMATION
  Report Type: Spontaneous
  Country: SA (occurrence: SA)
  Receive Date: 20200207
  Receipt Date: 20200207
  Transmission Date: 20200409
  Serious: Yes (Life-Threatening, Other)
  Sender: FDA-Public Use
  Company Number: SA-B.I. PHARMACEUTICALS,INC./RIDGEFIELD-2020-BI-006229

PATIENT
  Age: 8 Year
  Sex: Female
  Weight: 16.2 kg

DRUGS (2)
  1. ARGININE [Suspect]
     Active Substance: ARGININE
     Indication: DRUG THERAPY
     Dosage: 0.5 G/KG (TOTAL DOSE OF 8.1 G) INFUSED INTRAVENOUSLY OVER 30 MIN
     Route: 042
  2. CATAPRESAN [Suspect]
     Active Substance: CLONIDINE
     Indication: DRUG THERAPY
     Dosage: 0.15MG/M2 WAS GIVEN ORALLY (TOTAL DOSE OF 0.18 MG)
     Route: 048

REACTIONS (5)
  - Decreased appetite [Unknown]
  - Capillary disorder [Recovering/Resolving]
  - Abdominal pain [Unknown]
  - Somnolence [Unknown]
  - Loss of consciousness [Recovered/Resolved]
